FAERS Safety Report 9861721 (Version 1)
Quarter: 2014Q1

REPORT INFORMATION
  Report Type: Spontaneous
  Country: DE (occurrence: DE)
  Receive Date: 20140203
  Receipt Date: 20140203
  Transmission Date: 20141002
  Serious: Yes (Other)
  Sender: FDA-Public Use
  Company Number: DE-ACCORD-021519

PATIENT
  Age: 91 Year
  Sex: Female
  Weight: 47 kg

DRUGS (5)
  1. BISOPROLOL [Concomitant]
     Indication: TACHYCARDIA
  2. FENTANYL/FENTANYL CITRATE [Concomitant]
     Indication: OSTEOPOROSIS
  3. LETROZOLE [Suspect]
     Indication: BREAST CANCER FEMALE
     Route: 048
     Dates: start: 20130715
  4. DEKRISTOL [Concomitant]
     Indication: OSTEOPOROSIS
     Route: 048
     Dates: start: 20130716
  5. NOVAMINSULFON [Concomitant]
     Indication: OSTEOPOROSIS
     Dosage: DAILY DOSE: 90 GTT DROP(S) EVERY DAYS
     Route: 048

REACTIONS (1)
  - Thrombosis [Not Recovered/Not Resolved]
